FAERS Safety Report 21274833 (Version 1)
Quarter: 2022Q3

REPORT INFORMATION
  Report Type: Report from Study
  Country: CA (occurrence: CA)
  Receive Date: 20220831
  Receipt Date: 20220831
  Transmission Date: 20221027
  Serious: Yes (Other)
  Sender: FDA-Public Use
  Company Number: CA-PFIZER INC-202201102592

PATIENT
  Age: 40 Year
  Sex: Female

DRUGS (2)
  1. ADALIMUMAB [Suspect]
     Active Substance: ADALIMUMAB
     Indication: Psoriatic arthropathy
     Dosage: 40 MG, 1 EVERY 2 WEEKS
     Route: 065
  2. PREDNISONE [Concomitant]
     Active Substance: PREDNISONE
     Dosage: 15 MG
     Route: 065

REACTIONS (4)
  - Fungal infection [Recovered/Resolved]
  - Psoriasis [Recovered/Resolved]
  - Pyrexia [Recovered/Resolved]
  - Systemic lupus erythematosus [Recovered/Resolved]
